FAERS Safety Report 25343112 (Version 1)
Quarter: 2025Q2

REPORT INFORMATION
  Report Type: Spontaneous
  Country: CN (occurrence: CN)
  Receive Date: 20250521
  Receipt Date: 20250521
  Transmission Date: 20250717
  Serious: Yes (Hospitalization, Other)
  Sender: ABBVIE
  Company Number: CN-ABBVIE-6282714

PATIENT
  Age: 22 Year
  Sex: Female
  Weight: 40 kg

DRUGS (1)
  1. BOTOX [Suspect]
     Active Substance: ONABOTULINUMTOXINA
     Indication: Skin wrinkling
     Route: 023
     Dates: start: 20250508, end: 20250508

REACTIONS (6)
  - Anaphylactic shock [Recovering/Resolving]
  - Hyperventilation [Recovering/Resolving]
  - Chills [Unknown]
  - Dizziness [Unknown]
  - Discomfort [Unknown]
  - Dyspnoea [Unknown]

NARRATIVE: CASE EVENT DATE: 20250508
